FAERS Safety Report 7463364-0 (Version None)
Quarter: 2011Q2

REPORT INFORMATION
  Report Type: 
  Country: None (occurrence: None)
  Receive Date: 20110506
  Receipt Date: 20101021
  Transmission Date: 20111010
  Serious: Yes (Hospitalization)
  Sender: FDA-Public Use
  Company Number: A0889243A

PATIENT
  Age: 60 Year
  Sex: Male

DRUGS (1)
  1. AVANDIA [Suspect]
     Indication: DIABETES MELLITUS
     Route: 048
     Dates: start: 19990101, end: 20020101

REACTIONS (4)
  - GAIT DISTURBANCE [None]
  - CARDIOVASCULAR DISORDER [None]
  - DYSPNOEA [None]
  - MYOCARDIAL INFARCTION [None]
